FAERS Safety Report 20398568 (Version 8)
Quarter: 2023Q1

REPORT INFORMATION
  Report Type: Other
  Country: PL (occurrence: PL)
  Receive Date: 20220131
  Receipt Date: 20230113
  Transmission Date: 20230417
  Serious: Yes (Hospitalization, Disabling, Other)
  Sender: FDA-Public Use
  Company Number: None

PATIENT
  Age: 83 Year
  Sex: Female
  Weight: 91 kg

DRUGS (191)
  1. DONEPEZIL [Interacting]
     Active Substance: DONEPEZIL
     Indication: Product used for unknown indication
     Dosage: 5 MILLIGRAM, QD (0-0-1)
     Route: 065
  2. DONEPEZIL [Interacting]
     Active Substance: DONEPEZIL
     Dosage: 5 MILLIGRAM
     Route: 065
  3. POTASSIUM CHLORIDE [Interacting]
     Active Substance: POTASSIUM CHLORIDE
     Indication: Product used for unknown indication
     Dosage: 20 MILLIGRAM, EVERY 12 HRS
     Route: 065
  4. POTASSIUM CHLORIDE [Interacting]
     Active Substance: POTASSIUM CHLORIDE
     Dosage: 20 MILLIGRAM, EVERY 12 HRS
     Route: 065
  5. POTASSIUM CHLORIDE [Interacting]
     Active Substance: POTASSIUM CHLORIDE
     Dosage: 391 MILLIGRAM, PER TWO DAYS (TABLETS)
     Route: 065
  6. POTASSIUM CHLORIDE [Interacting]
     Active Substance: POTASSIUM CHLORIDE
     Dosage: UNK
     Route: 065
  7. POTASSIUM CHLORIDE [Interacting]
     Active Substance: POTASSIUM CHLORIDE
     Dosage: 391 MILLIGRAM, PER TWO DAYS (TABLET)
     Route: 048
  8. POTASSIUM CHLORIDE [Interacting]
     Active Substance: POTASSIUM CHLORIDE
     Dosage: 1 DOSAGE FORM, QOD (TABLET)
     Route: 048
  9. POTASSIUM CHLORIDE [Interacting]
     Active Substance: POTASSIUM CHLORIDE
     Dosage: 1 DOSAGE FORM; PER 2 DAYS
     Route: 065
  10. POTASSIUM CHLORIDE [Interacting]
     Active Substance: POTASSIUM CHLORIDE
     Dosage: 391 MILLIGRAM, EVERY 12 HRS (TABLETS)
     Route: 048
  11. POTASSIUM CHLORIDE [Interacting]
     Active Substance: POTASSIUM CHLORIDE
     Dosage: 391 MILLIGRAM
     Route: 065
  12. POTASSIUM CHLORIDE [Interacting]
     Active Substance: POTASSIUM CHLORIDE
     Dosage: UNK
     Route: 065
  13. ZOLPIDEM [Interacting]
     Active Substance: ZOLPIDEM TARTRATE
     Indication: Depression
     Dosage: UNK, 24 HOURS
     Route: 065
  14. ZOLPIDEM [Interacting]
     Active Substance: ZOLPIDEM TARTRATE
     Dosage: 100 MILLIGRAM, 24 HOURS
     Route: 065
  15. ZOLPIDEM [Interacting]
     Active Substance: ZOLPIDEM TARTRATE
     Dosage: UNK, EVERY 12 HRS
     Route: 065
  16. ZOLPIDEM [Interacting]
     Active Substance: ZOLPIDEM TARTRATE
     Dosage: UNK, EVERY 12 HRS
     Route: 065
  17. ZOLPIDEM [Interacting]
     Active Substance: ZOLPIDEM TARTRATE
     Dosage: 10 MILLIGRAM PER DAY
     Route: 065
  18. ZOLPIDEM [Interacting]
     Active Substance: ZOLPIDEM TARTRATE
     Dosage: 10 MILLIGRAM PER DAY (0-0-1)
     Route: 065
  19. ZOLPIDEM [Interacting]
     Active Substance: ZOLPIDEM TARTRATE
     Dosage: 1 DOSAGE FORM PER DAY
     Route: 065
  20. ZOLPIDEM [Interacting]
     Active Substance: ZOLPIDEM TARTRATE
     Dosage: 10 MILLIGRAM, QD (0-0-1)
     Route: 065
  21. ZOLPIDEM [Interacting]
     Active Substance: ZOLPIDEM TARTRATE
     Dosage: 100 MILLIGRAM PER DAY
     Route: 065
  22. ZOLPIDEM [Interacting]
     Active Substance: ZOLPIDEM TARTRATE
     Dosage: UNK, 0-0-1
     Route: 065
  23. ZOLPIDEM [Interacting]
     Active Substance: ZOLPIDEM TARTRATE
     Dosage: 10 MILLIGRAM PER DAY
     Route: 065
  24. ZOLPIDEM [Interacting]
     Active Substance: ZOLPIDEM TARTRATE
     Dosage: 10 MILLIGRAM PER DAY
     Route: 048
  25. ALPRAZOLAM [Interacting]
     Active Substance: ALPRAZOLAM
     Indication: Depression
     Dosage: 0.5 MILLIGRAM, BID (TABLET)
     Route: 065
  26. ALPRAZOLAM [Interacting]
     Active Substance: ALPRAZOLAM
     Dosage: UNK, DAILY (TABLET)
     Route: 065
  27. ALPRAZOLAM [Interacting]
     Active Substance: ALPRAZOLAM
     Dosage: UNK, EVERY 12 HRS (TABLET)
     Route: 065
  28. ALPRAZOLAM [Interacting]
     Active Substance: ALPRAZOLAM
     Dosage: 0.5 MILLIGRAM, EVERY 12 HRS (TABLET)
     Route: 005
  29. ALPRAZOLAM [Interacting]
     Active Substance: ALPRAZOLAM
     Dosage: 2 DOSAGE FORM PER DAY (TABLET)
     Route: 065
  30. ALPRAZOLAM [Interacting]
     Active Substance: ALPRAZOLAM
     Dosage: 0.5 MILLIGRAM 24 HRS (TABLET)
     Route: 048
  31. ALPRAZOLAM [Interacting]
     Active Substance: ALPRAZOLAM
     Dosage: UNK, EVERY 12 HRS
     Route: 065
  32. ALPRAZOLAM [Interacting]
     Active Substance: ALPRAZOLAM
     Dosage: 0.5 MILLIGRAM; INTERMITTENTLY, ON AVERAGE 2 TIMES/24 H
     Route: 065
  33. ALPRAZOLAM [Interacting]
     Active Substance: ALPRAZOLAM
     Dosage: 2 DOSAGE FORM; PER DAY (ADHOC USUALLY)
     Route: 065
  34. ALPRAZOLAM [Interacting]
     Active Substance: ALPRAZOLAM
     Dosage: UNK, PER 24 HR
     Route: 065
  35. ALPRAZOLAM [Interacting]
     Active Substance: ALPRAZOLAM
     Dosage: 1  DOSAGE FORM PER DAY (TABLET)
     Route: 065
  36. ALPRAZOLAM [Interacting]
     Active Substance: ALPRAZOLAM
     Dosage: 0.5 MILLIGRAM PER DAY (TABLET)
     Route: 048
  37. ISOSORBIDE MONONITRATE [Interacting]
     Active Substance: ISOSORBIDE MONONITRATE
     Indication: Product used for unknown indication
     Dosage: 50 MILLIGRAM, INTERMITTENTLY ON AVERAGE 1-2 TIMES/24H
     Route: 065
  38. ISOSORBIDE MONONITRATE [Interacting]
     Active Substance: ISOSORBIDE MONONITRATE
     Dosage: 50 MILLIGRAM PER 24 HRS, USUALLY, 1-2 TABLETS A DAY
     Route: 065
  39. ISOSORBIDE MONONITRATE [Interacting]
     Active Substance: ISOSORBIDE MONONITRATE
     Dosage: UNK, EVERY 12 HRS
     Route: 065
  40. ISOSORBIDE MONONITRATE [Interacting]
     Active Substance: ISOSORBIDE MONONITRATE
     Dosage: 50 MILLIGRAM; EVERY 24 HRS; ON DEMAND, TYPICALLY 1-2 X/24 H
     Route: 065
  41. ISOSORBIDE MONONITRATE [Interacting]
     Active Substance: ISOSORBIDE MONONITRATE
     Dosage: 100 MILLIGRAM PER DAY ( AS NEEDED, AV. ONCE/TWICE, DAILY )
  42. FUROSEMIDE [Interacting]
     Active Substance: FUROSEMIDE
     Indication: Product used for unknown indication
     Dosage: 120 MILLIGRAM (40 MILLIGRAM,3 TABLETS EVERY 2ND DAY)
     Route: 065
  43. FUROSEMIDE [Interacting]
     Active Substance: FUROSEMIDE
     Dosage: UNK; (TABLET)
     Route: 065
  44. FUROSEMIDE [Interacting]
     Active Substance: FUROSEMIDE
     Dosage: 3 DOSAGE FORM (3 TABLETS EVERY 2ND DAY). 120 MG
     Route: 065
  45. FUROSEMIDE [Interacting]
     Active Substance: FUROSEMIDE
     Dosage: UNK UNK, EVERY 12 HRS (TABLET)
     Route: 065
  46. FUROSEMIDE [Interacting]
     Active Substance: FUROSEMIDE
     Dosage: 3 DOSAGE FORM (3 TABLETS EVERY 2ND DAY)
     Route: 048
  47. FUROSEMIDE [Interacting]
     Active Substance: FUROSEMIDE
     Dosage: UNK UNK, EVERY 12 HRS (TABLET)
     Route: 065
  48. FUROSEMIDE [Interacting]
     Active Substance: FUROSEMIDE
     Dosage: 40 MILLIGRAM PER DAY
     Route: 065
  49. FUROSEMIDE [Interacting]
     Active Substance: FUROSEMIDE
     Dosage: UNK
     Route: 065
  50. TRAMADOL [Interacting]
     Active Substance: TRAMADOL
     Indication: Pain
     Dosage: 2 DOSAGE FORM, UNK
     Route: 065
  51. TRAMADOL [Interacting]
     Active Substance: TRAMADOL
     Dosage: 20 MILLIGRAM, EVERY 12 HRS (TABLET)
     Route: 065
  52. TRAMADOL [Interacting]
     Active Substance: TRAMADOL
     Dosage: 100 MILLIGRAM, EVERY 12 HRS (TABLET)
     Route: 065
  53. TRAMADOL [Interacting]
     Active Substance: TRAMADOL
     Dosage: 20 MILLIGRAM, EVERY 12 HRS (TABLET)
     Route: 065
  54. TRAMADOL [Interacting]
     Active Substance: TRAMADOL
     Dosage: 50 MILLIGRAM; UNK (TABLET)
     Route: 065
  55. TRAMADOL [Interacting]
     Active Substance: TRAMADOL
     Dosage: 200 MILLIGRAM,INTERMITTENTLY, UNK (TABLET)
     Route: 065
  56. TRAMADOL [Interacting]
     Active Substance: TRAMADOL
     Dosage: UNK
     Route: 065
  57. TRAMADOL [Interacting]
     Active Substance: TRAMADOL
     Dosage: 2 DOSAGE FORM, PRN (TABLET)
     Route: 048
  58. TRAMADOL [Interacting]
     Active Substance: TRAMADOL
     Dosage: 100 MILLIGRAM, PRN ( 2TABLET)
     Route: 065
  59. TRAMADOL [Interacting]
     Active Substance: TRAMADOL
     Dosage: UNK
     Route: 065
  60. HYDROXYZINE HYDROCHLORIDE [Interacting]
     Active Substance: HYDROXYZINE HYDROCHLORIDE
     Indication: Product used for unknown indication
     Dosage: 25 MILLIGRAM, (ADHOC USUALLY) UNK (COATED TABLET)
     Route: 065
  61. HYDROXYZINE HYDROCHLORIDE [Interacting]
     Active Substance: HYDROXYZINE HYDROCHLORIDE
     Dosage: UNK, EVERY 24 HR (COATED TABLET)
     Route: 065
  62. HYDROXYZINE HYDROCHLORIDE [Interacting]
     Active Substance: HYDROXYZINE HYDROCHLORIDE
     Dosage: 40 MILLIGRAM, UNK (COATED TABLET)
     Route: 065
  63. HYDROXYZINE HYDROCHLORIDE [Interacting]
     Active Substance: HYDROXYZINE HYDROCHLORIDE
     Dosage: 25 MILLIGRAM, EVERY 12 HRS (DOSAGE SCHEDULE: ON DEMAND, ON AVERAGE 2 TIMES/24H)
     Route: 065
  64. HYDROXYZINE HYDROCHLORIDE [Interacting]
     Active Substance: HYDROXYZINE HYDROCHLORIDE
     Dosage: UNK
     Route: 065
  65. HYDROXYZINE HYDROCHLORIDE [Interacting]
     Active Substance: HYDROXYZINE HYDROCHLORIDE
     Dosage: 25 MILLIGRAM, PRN
     Route: 065
  66. HYDROXYZINE HYDROCHLORIDE [Interacting]
     Active Substance: HYDROXYZINE HYDROCHLORIDE
     Dosage: 1 DOSAGE FORM
     Route: 065
  67. METOCLOPRAMIDE [Interacting]
     Active Substance: METOCLOPRAMIDE
     Indication: Constipation
     Dosage: 10 MILLIGRAM, PRN (IN CASE OF CONSTIPATION 2 TABLETS, BUT FOR MANY MONTHS) TABLET
     Route: 065
  68. METOCLOPRAMIDE [Interacting]
     Active Substance: METOCLOPRAMIDE
     Dosage: 20 MILLIGRAM (INTERMITTENTLY IN CASE OF CONSTIPATION FOR MANY MONTHS) TABLET
     Route: 065
  69. METOCLOPRAMIDE [Interacting]
     Active Substance: METOCLOPRAMIDE
     Dosage: 2 DOSAGE FORM, PRN; TABLET
     Route: 048
  70. METOCLOPRAMIDE [Interacting]
     Active Substance: METOCLOPRAMIDE
     Dosage: 2 DOSAGE FORM, PRN; TABLET
     Route: 065
  71. METOCLOPRAMIDE [Interacting]
     Active Substance: METOCLOPRAMIDE
     Dosage: 10 MILLIGRAM, PRN; TABLET
     Route: 065
  72. METOCLOPRAMIDE [Interacting]
     Active Substance: METOCLOPRAMIDE
     Dosage: 2 DOSAGE FORM; ON DEMAND IN THE EVENT OF CONSTIPATION (2 TABLETS), BUT FOR MANY MONTHS (TABLET)
     Route: 065
  73. METOCLOPRAMIDE [Interacting]
     Active Substance: METOCLOPRAMIDE
     Dosage: UNK
     Route: 065
  74. TORSEMIDE [Interacting]
     Active Substance: TORSEMIDE
     Indication: Product used for unknown indication
     Dosage: UNK
     Route: 065
  75. TORSEMIDE [Interacting]
     Active Substance: TORSEMIDE
     Dosage: UNK
     Route: 065
  76. TORSEMIDE [Interacting]
     Active Substance: TORSEMIDE
     Dosage: UNK
     Route: 048
  77. TORSEMIDE [Interacting]
     Active Substance: TORSEMIDE
     Dosage: 5 MILLIGRAM, QD (1-0-0)
     Route: 065
  78. ALLOPURINOL [Interacting]
     Active Substance: ALLOPURINOL
     Indication: Product used for unknown indication
     Dosage: 100 MILLIGRAM, EVERY MORNING
     Route: 065
  79. ALLOPURINOL [Interacting]
     Active Substance: ALLOPURINOL
     Dosage: UNK, EVERY 12 HRS
     Route: 065
  80. ALLOPURINOL [Interacting]
     Active Substance: ALLOPURINOL
     Dosage: UNK, EVERY 12 HRS
     Route: 065
  81. ALLOPURINOL [Interacting]
     Active Substance: ALLOPURINOL
     Dosage: 100 MILLIGRAM PER DAY
     Route: 048
  82. ALLOPURINOL [Interacting]
     Active Substance: ALLOPURINOL
     Dosage: 100 MILLIGRAM, QD (1-0-0)
     Route: 065
  83. ALLOPURINOL [Interacting]
     Active Substance: ALLOPURINOL
     Dosage: 1 DOSAGE FORM PER DAY
     Route: 065
  84. ALLOPURINOL [Interacting]
     Active Substance: ALLOPURINOL
     Dosage: UNK, EVERY 12 HRS
     Route: 065
  85. ALLOPURINOL [Interacting]
     Active Substance: ALLOPURINOL
     Dosage: 50 MILLIGRAM, PER DAY
     Route: 048
  86. ALLOPURINOL [Interacting]
     Active Substance: ALLOPURINOL
     Dosage: 100 MILLIGRAM PER 24 HRS
     Route: 065
  87. METFORMIN [Interacting]
     Active Substance: METFORMIN HYDROCHLORIDE
     Indication: Type 2 diabetes mellitus
     Dosage: UNK
     Route: 065
  88. METFORMIN [Interacting]
     Active Substance: METFORMIN HYDROCHLORIDE
     Dosage: UNK
     Route: 065
  89. METFORMIN [Interacting]
     Active Substance: METFORMIN HYDROCHLORIDE
     Dosage: UNK
     Route: 048
  90. METFORMIN [Interacting]
     Active Substance: METFORMIN HYDROCHLORIDE
     Dosage: UNK
     Route: 065
  91. GLICLAZIDE [Interacting]
     Active Substance: GLICLAZIDE
     Indication: Type 2 diabetes mellitus
     Dosage: 60 MILLIGRAM, EVERY 8 HOURS (1-1-1)
     Route: 065
  92. GLICLAZIDE [Interacting]
     Active Substance: GLICLAZIDE
     Dosage: 60 MILLIGRAM, EVERY 8 HOURS (1-1-1)
     Route: 065
  93. GLICLAZIDE [Interacting]
     Active Substance: GLICLAZIDE
     Dosage: UNK
     Route: 065
  94. DEXTROSE\NIKETHAMIDE [Interacting]
     Active Substance: DEXTROSE\NIKETHAMIDE
     Indication: Product used for unknown indication
     Dosage: 20 MILLIGRAM, EVERY 12 HRS
     Route: 065
  95. DEXTROSE\NIKETHAMIDE [Interacting]
     Active Substance: DEXTROSE\NIKETHAMIDE
     Dosage: UNK, 1,5 + 125 MG
     Route: 065
  96. DEXTROSE\NIKETHAMIDE [Interacting]
     Active Substance: DEXTROSE\NIKETHAMIDE
     Dosage: 20 MILLIGRAM, EVERY 12 HRS
     Route: 065
  97. DEXTROSE\NIKETHAMIDE [Interacting]
     Active Substance: DEXTROSE\NIKETHAMIDE
     Dosage: UNK
     Route: 065
  98. LEVOTHYROXINE [Interacting]
     Active Substance: LEVOTHYROXINE
     Indication: Product used for unknown indication
     Dosage: 25 MILLIGRAM PER 24 HR
     Route: 065
  99. LEVOTHYROXINE [Interacting]
     Active Substance: LEVOTHYROXINE
     Dosage: 20 MILLIGRAM, EVERY 12 HRS
     Route: 048
  100. LEVOTHYROXINE [Interacting]
     Active Substance: LEVOTHYROXINE
     Dosage: 20 MILLIGRAM, EVERY 12 HRS
     Route: 048
  101. LEVOTHYROXINE [Interacting]
     Active Substance: LEVOTHYROXINE
     Dosage: 100 MICROGRAM PER 24 HR (1-10-0 AT LEAST FOR 2 YEARS )
     Route: 065
  102. LEVOTHYROXINE [Interacting]
     Active Substance: LEVOTHYROXINE
     Dosage: 100 MICROGRAM, QD (PER DAY (1-0-0; AT LEAST FOR 2 YEARS)
     Route: 005
  103. CHOLECALCIFEROL [Interacting]
     Active Substance: CHOLECALCIFEROL
     Indication: Product used for unknown indication
     Dosage: 1 DOSAGE FORM, QD (1-0-0)
     Route: 065
  104. CHOLECALCIFEROL [Interacting]
     Active Substance: CHOLECALCIFEROL
     Dosage: UNK, PER 24 HOUR
     Route: 065
  105. CHOLECALCIFEROL [Interacting]
     Active Substance: CHOLECALCIFEROL
     Dosage: 1 DOSAGE FORM PER DAY
     Route: 065
  106. RAMIPRIL [Interacting]
     Active Substance: RAMIPRIL
     Indication: Cardiac failure
     Dosage: 5 MILLIGRAM EVERY 24 HRS
     Route: 048
  107. RAMIPRIL [Interacting]
     Active Substance: RAMIPRIL
     Dosage: 5 MILLIGRAM PER DAY, 1-0-0, AT LEAST FOR 2 YEARS
     Route: 065
  108. RAMIPRIL [Interacting]
     Active Substance: RAMIPRIL
     Dosage: 50 MILLIGRAM, EVERY 12 HRS
     Route: 065
  109. RAMIPRIL [Interacting]
     Active Substance: RAMIPRIL
     Dosage: 1 DOSAGE FORM; PER DAY
     Route: 065
  110. RAMIPRIL [Interacting]
     Active Substance: RAMIPRIL
     Dosage: UNK
     Route: 065
  111. ACETAMINOPHEN [Interacting]
     Active Substance: ACETAMINOPHEN
     Indication: Product used for unknown indication
     Dosage: 20 MILLIGRAM, EVERY 12 HRS
     Route: 065
  112. ACETAMINOPHEN [Interacting]
     Active Substance: ACETAMINOPHEN
     Dosage: 500 MILLIGRAM, EVERY 12 HRS
     Route: 065
  113. ACETAMINOPHEN [Interacting]
     Active Substance: ACETAMINOPHEN
     Dosage: 500 MILLIGRAM PER DAY
     Route: 065
  114. ACETAMINOPHEN [Interacting]
     Active Substance: ACETAMINOPHEN
     Dosage: 20 MILLIGRAM, EVERY 12 HRS
     Route: 065
  115. ACETAMINOPHEN [Interacting]
     Active Substance: ACETAMINOPHEN
     Dosage: 500 MILLIGRAM, AT BED TIME (0-0-1)
     Route: 065
  116. ACETAMINOPHEN [Interacting]
     Active Substance: ACETAMINOPHEN
     Dosage: 250 MILLIGRAM, BID (1-0-1)
     Route: 065
  117. ACETAMINOPHEN [Interacting]
     Active Substance: ACETAMINOPHEN
     Dosage: 1000 MILLIGRAM PER DAY
     Route: 065
  118. HYDROCHLOROTHIAZIDE [Interacting]
     Active Substance: HYDROCHLOROTHIAZIDE
     Indication: Product used for unknown indication
     Dosage: 25 MILLIGRAM, QD (1-0-0)
     Route: 065
  119. HYDROCHLOROTHIAZIDE [Interacting]
     Active Substance: HYDROCHLOROTHIAZIDE
     Dosage: UNK, EVERY 24 HR
     Route: 065
  120. HYDROCHLOROTHIAZIDE [Interacting]
     Active Substance: HYDROCHLOROTHIAZIDE
     Dosage: 25 MILLIGRAM PER 24 HR
     Route: 065
  121. HYDROCHLOROTHIAZIDE [Interacting]
     Active Substance: HYDROCHLOROTHIAZIDE
     Dosage: UNK, EVERY 12 HRS
     Route: 065
  122. HYDROCHLOROTHIAZIDE [Interacting]
     Active Substance: HYDROCHLOROTHIAZIDE
     Dosage: UNK, EVERY 12 HRS
     Route: 065
  123. HYDROCHLOROTHIAZIDE [Interacting]
     Active Substance: HYDROCHLOROTHIAZIDE
     Dosage: 25 MILLIGRAM; PER DAY
     Route: 048
  124. HYDROCHLOROTHIAZIDE [Interacting]
     Active Substance: HYDROCHLOROTHIAZIDE
     Dosage: UNK, EVERY 12 HRS
     Route: 065
  125. HYDROCHLOROTHIAZIDE [Interacting]
     Active Substance: HYDROCHLOROTHIAZIDE
     Dosage: 1 DOSAGE FORM ( 12 HOUR)
     Route: 065
  126. ATORVASTATIN [Interacting]
     Active Substance: ATORVASTATIN
     Indication: Product used for unknown indication
     Dosage: 20 MILLIGRAM, AT BED TIME (0-0-1)
     Route: 048
  127. ATORVASTATIN [Interacting]
     Active Substance: ATORVASTATIN
     Dosage: 20 MILLIGRAM, AT BED TIME (0-0-1)
     Route: 065
  128. ATORVASTATIN [Interacting]
     Active Substance: ATORVASTATIN
     Dosage: 1 DOSAGE FORM PER DAY
     Route: 065
  129. ALBUTEROL [Interacting]
     Active Substance: ALBUTEROL
     Indication: Product used for unknown indication
     Dosage: 100 MICROGRAM, UNK, INTERMITTANTLY
     Route: 065
  130. ALBUTEROL [Interacting]
     Active Substance: ALBUTEROL
     Dosage: 100 MICROGRAM, PRN
     Route: 065
  131. ALBUTEROL [Interacting]
     Active Substance: ALBUTEROL
     Dosage: 100 MICROGRAM, UNK
     Route: 048
  132. ALBUTEROL [Interacting]
     Active Substance: ALBUTEROL
     Dosage: 100 MICROGRAM; ON DEMAND
     Route: 065
  133. ALBUTEROL [Interacting]
     Active Substance: ALBUTEROL
     Dosage: 20 MILLIGRAM (12 HOUR)
     Route: 065
  134. ALBUTEROL [Interacting]
     Active Substance: ALBUTEROL
     Dosage: UNK
     Route: 065
  135. BETAHISTINE HYDROCHLORIDE [Interacting]
     Active Substance: BETAHISTINE HYDROCHLORIDE
     Indication: Dizziness
     Dosage: 24 MILLIGRAM, EVERY 24 HRS (0-1-0)
     Route: 065
  136. BETAHISTINE HYDROCHLORIDE [Interacting]
     Active Substance: BETAHISTINE HYDROCHLORIDE
     Dosage: 24 MILLIGRAM PER DAY
     Route: 065
  137. BETAHISTINE HYDROCHLORIDE [Interacting]
     Active Substance: BETAHISTINE HYDROCHLORIDE
     Dosage: 20 MILLIGRAM, EVERY 12 HRS
     Route: 065
  138. BETAHISTINE HYDROCHLORIDE [Interacting]
     Active Substance: BETAHISTINE HYDROCHLORIDE
     Dosage: 20 MILLIGRAM, EVERY 12 HRS
     Route: 065
  139. BETAHISTINE HYDROCHLORIDE [Interacting]
     Active Substance: BETAHISTINE HYDROCHLORIDE
     Dosage: 24 MILLIGRAM, QD (0-1-0)
     Route: 048
  140. BETAHISTINE HYDROCHLORIDE [Interacting]
     Active Substance: BETAHISTINE HYDROCHLORIDE
     Dosage: 1024 MILLIGRAM PER DAY ( 24 HOUR)
     Route: 065
  141. QUETIAPINE [Interacting]
     Active Substance: QUETIAPINE
     Indication: Product used for unknown indication
     Dosage: 25 MILLIGRAM, QD
     Route: 065
  142. QUETIAPINE [Interacting]
     Active Substance: QUETIAPINE
     Dosage: UNK
     Route: 065
  143. NIKETHAMIDE [Interacting]
     Active Substance: NIKETHAMIDE
     Indication: Product used for unknown indication
     Dosage: 125 MILLIGRAM, UNK, INTERMITTENTLY
     Route: 065
  144. NIKETHAMIDE [Interacting]
     Active Substance: NIKETHAMIDE
     Dosage: 125 MILLIGRAM, UNK, INTERMITTENTLY
     Route: 065
  145. DABIGATRAN [Interacting]
     Active Substance: DABIGATRAN
     Indication: Product used for unknown indication
     Dosage: 110 MILLIGRAM, BID (1-0-1; AT LEAST FOR 2 YEARS)
     Route: 065
  146. DABIGATRAN [Interacting]
     Active Substance: DABIGATRAN
     Dosage: 110 MILLIGRAM, BID
     Route: 065
  147. DABIGATRAN [Interacting]
     Active Substance: DABIGATRAN
     Dosage: 20 MILLIGRAM, EVERY 12 HRS
     Route: 065
  148. DABIGATRAN [Interacting]
     Active Substance: DABIGATRAN
     Dosage: 20 MILLIGRAM, EVERY 12 HRS
     Route: 065
  149. DABIGATRAN [Interacting]
     Active Substance: DABIGATRAN
     Dosage: 20 MILLIGRAM; PER DAY
     Route: 048
  150. DABIGATRAN [Interacting]
     Active Substance: DABIGATRAN
     Dosage: UNK; PER DAY
     Route: 048
  151. DABIGATRAN [Interacting]
     Active Substance: DABIGATRAN
     Dosage: UNK
     Route: 065
  152. DABIGATRAN [Interacting]
     Active Substance: DABIGATRAN
     Dosage: UNK, BID (1-0-1)
     Route: 048
  153. DABIGATRAN [Interacting]
     Active Substance: DABIGATRAN
     Dosage: 110 MILLIGRAM, EVERY 12 HRS  1-0-1(0.5 DAY)
     Route: 065
  154. CITALOPRAM [Interacting]
     Active Substance: CITALOPRAM HYDROBROMIDE
     Indication: Depression
     Dosage: UNK
     Route: 065
  155. CITALOPRAM [Interacting]
     Active Substance: CITALOPRAM HYDROBROMIDE
     Dosage: 40 MILLIGRAM; EVERY MORNING (1-0-0)
     Route: 065
  156. CITALOPRAM [Interacting]
     Active Substance: CITALOPRAM HYDROBROMIDE
     Dosage: 40 MILLIGRAM PER DAY; EVERY MORNING (1-0-0), FILM-COATED TABLET
     Route: 048
  157. CITALOPRAM [Interacting]
     Active Substance: CITALOPRAM HYDROBROMIDE
     Dosage: 40 MILLIGRAM, AT BED TIME (0-0-1)
     Route: 065
  158. CITALOPRAM [Interacting]
     Active Substance: CITALOPRAM HYDROBROMIDE
     Dosage: 1 DOSAGE FORM PER DAY
     Route: 065
  159. OMEPRAZOLE [Interacting]
     Active Substance: OMEPRAZOLE
     Indication: Product used for unknown indication
     Dosage: 20 MILLIGRAM, BID (1-1-0)
     Route: 065
  160. OMEPRAZOLE [Interacting]
     Active Substance: OMEPRAZOLE
     Dosage: UNK, EVERY 12 HRS (1-1-0)
     Route: 065
  161. OMEPRAZOLE [Interacting]
     Active Substance: OMEPRAZOLE
     Dosage: 20 MILLIGRAM, BID
     Route: 065
  162. OMEPRAZOLE [Interacting]
     Active Substance: OMEPRAZOLE
     Dosage: 40 MILLIGRAM PER DAY
     Route: 065
  163. OMEPRAZOLE [Interacting]
     Active Substance: OMEPRAZOLE
     Dosage: 100 MILLIGRAM, EVERY 12 HRS
     Route: 065
  164. OMEPRAZOLE [Interacting]
     Active Substance: OMEPRAZOLE
     Dosage: 40 MILLIGRAM
     Route: 048
  165. OMEPRAZOLE [Interacting]
     Active Substance: OMEPRAZOLE
     Dosage: 200 MILLIGRAM PER DAY
     Route: 065
  166. METOPROLOL [Interacting]
     Active Substance: METOPROLOL
     Indication: Hypertension
     Dosage: 50 MILLIGRAM, EVERY 12 HRS (DOSAGE SCHEDULE: 1-0-1)
     Route: 065
  167. METOPROLOL [Interacting]
     Active Substance: METOPROLOL
     Indication: Type 2 diabetes mellitus
     Dosage: UNK, EVERY 12 HRS (DOSAGE SCHEDULE: 1-0-1/2 (DOSE REDUCE))
     Route: 065
  168. METOPROLOL [Interacting]
     Active Substance: METOPROLOL
     Dosage: 100 MILLIGRAM; GASTRO-RESISTANT COATED TABLET
     Route: 048
  169. METOPROLOL [Interacting]
     Active Substance: METOPROLOL
     Dosage: 50 MILLIGRAM; DOSAGE SCHEDULE: 1-0-1/2 (DOSE REDUCE);
     Route: 065
  170. METOPROLOL [Interacting]
     Active Substance: METOPROLOL
     Dosage: 50 MILLIGRAM; DOSAGE SCHEDULE: 1-0-1
     Route: 065
  171. METOPROLOL [Interacting]
     Active Substance: METOPROLOL
     Dosage: 2 DOSAGE FORM (TABLET)
     Route: 065
  172. METOPROLOL [Interacting]
     Active Substance: METOPROLOL
     Dosage: 20 DOSAGE FORM, PRN (TABLET)
     Route: 065
  173. METOPROLOL [Interacting]
     Active Substance: METOPROLOL
     Dosage: 20 DOSAGE FORM,  (TABLET)
     Route: 065
  174. METOPROLOL [Interacting]
     Active Substance: METOPROLOL
     Dosage: 10 MILLIGRAM (2 TABLETS AS NEEDED, IN CASE OF CONSTIPATION)
     Route: 065
  175. METOPROLOL [Interacting]
     Active Substance: METOPROLOL
     Dosage: 10 MILLIGRAM PER DAY
     Route: 065
  176. SPIRONOLACTONE [Interacting]
     Active Substance: SPIRONOLACTONE
     Indication: Product used for unknown indication
     Dosage: 100 MILLIGRAM, QD
     Route: 065
  177. SPIRONOLACTONE [Interacting]
     Active Substance: SPIRONOLACTONE
     Dosage: UNK, EVERY 12 HRS
     Route: 065
  178. SPIRONOLACTONE [Interacting]
     Active Substance: SPIRONOLACTONE
     Dosage: UNK, EVERY 12 HRS
     Route: 065
  179. SPIRONOLACTONE [Interacting]
     Active Substance: SPIRONOLACTONE
     Dosage: 100 MILLIGRAM PER DAY
     Route: 065
  180. SPIRONOLACTONE [Interacting]
     Active Substance: SPIRONOLACTONE
     Dosage: 100 MILLIGRAM PER DAY (0-1-0, AT LEAST FOR 2 YEARS)
     Route: 065
  181. SPIRONOLACTONE [Interacting]
     Active Substance: SPIRONOLACTONE
     Dosage: 100 MILLIGRAM PER DAY
     Route: 048
  182. SPIRONOLACTONE [Interacting]
     Active Substance: SPIRONOLACTONE
     Dosage: UNK, EVERY 12 HRS
     Route: 065
  183. SPIRONOLACTONE [Interacting]
     Active Substance: SPIRONOLACTONE
     Dosage: 100 MILLIGRAM; EVERY 24 HRS (0-1-0)
     Route: 065
  184. BENSERAZIDE\LEVODOPA [Interacting]
     Active Substance: BENSERAZIDE\LEVODOPA
     Indication: Product used for unknown indication
     Dosage: 62.5 MILLIGRAM, EVERY 8 HRS
     Route: 065
  185. BENSERAZIDE\LEVODOPA [Interacting]
     Active Substance: BENSERAZIDE\LEVODOPA
     Dosage: 187.5 MILLIGRAM PER DAY
     Route: 065
  186. DENOSUMAB [Interacting]
     Active Substance: DENOSUMAB
     Indication: Product used for unknown indication
     Dosage: 60 MILLIGRAM, UNK
     Route: 065
  187. POTASSIUM CHLORIDE\RIBOFLAVIN 5^-PHOSPHATE SODIUM [Suspect]
     Active Substance: POTASSIUM CHLORIDE\RIBOFLAVIN 5^-PHOSPHATE SODIUM
     Indication: Product used for unknown indication
     Dosage: UNK
     Route: 065
  188. VORTIOXETINE [Concomitant]
     Active Substance: VORTIOXETINE
     Indication: Product used for unknown indication
     Dosage: UNK
     Route: 065
  189. VORTIOXETINE [Concomitant]
     Active Substance: VORTIOXETINE
     Dosage: 10 MILLIGRAM, QD (0-0-1)
     Route: 065
  190. DEXTROSE [Concomitant]
     Active Substance: DEXTROSE
     Indication: Product used for unknown indication
     Dosage: 1.5 MILLIGRAM, INTERMITTENTLY
     Route: 065
  191. DEXTROSE [Concomitant]
     Active Substance: DEXTROSE
     Dosage: UNK
     Route: 065

REACTIONS (51)
  - Osteoporosis [Unknown]
  - Drug interaction [Unknown]
  - Syncope [Recovered/Resolved]
  - Hyponatraemia [Unknown]
  - Parkinsonism [Unknown]
  - Hypoglycaemia [Recovered/Resolved]
  - Melaena [Unknown]
  - Diabetes mellitus inadequate control [Unknown]
  - Condition aggravated [Unknown]
  - Medication error [Unknown]
  - Initial insomnia [Unknown]
  - Constipation [Unknown]
  - Arthralgia [Unknown]
  - Urinary retention [Unknown]
  - Multiple drug therapy [Unknown]
  - Abdominal pain upper [Unknown]
  - Hypotension [Recovered/Resolved]
  - Depression [Unknown]
  - Motor dysfunction [Recovered/Resolved]
  - Hypotension [Recovered/Resolved]
  - Nausea [Unknown]
  - Cognitive disorder [Unknown]
  - Peripheral circulatory failure [Unknown]
  - Mobility decreased [Recovered/Resolved]
  - Bradykinesia [Unknown]
  - Dizziness [Recovered/Resolved]
  - Muscle rigidity [Unknown]
  - Dementia [Unknown]
  - Insomnia [Unknown]
  - Sedation [Recovered/Resolved]
  - Fall [Recovered/Resolved]
  - Pruritus [Unknown]
  - Dysuria [Unknown]
  - Dysuria [Unknown]
  - Blood urea increased [Unknown]
  - Blood creatinine increased [Unknown]
  - Atrioventricular block first degree [Recovered/Resolved]
  - Hyperkalaemia [Unknown]
  - General physical health deterioration [Unknown]
  - Gastric polyps [Unknown]
  - Hyperglycaemia [Unknown]
  - Labelled drug-drug interaction issue [Recovered/Resolved]
  - Hiatus hernia [Unknown]
  - Product use issue [Unknown]
  - Stupor [Unknown]
  - Neuroglycopenia [Unknown]
  - Blood pressure decreased [Unknown]
  - Hypotonia [Unknown]
  - Incorrect product administration duration [Unknown]
  - Product administration error [Unknown]
  - Off label use [Unknown]

NARRATIVE: CASE EVENT DATE: 20210101
